FAERS Safety Report 6058977-7 (Version None)
Quarter: 2009Q1

REPORT INFORMATION
  Report Type: 
  Country: None (occurrence: None)
  Receive Date: 20090130
  Receipt Date: 20090123
  Transmission Date: 20090719
  Serious: Yes (Hospitalization)
  Sender: FDA-Public Use
  Company Number: A0765736A

PATIENT
  Age: 56 Year
  Sex: Male
  Weight: 61.4 kg

DRUGS (3)
  1. AVANDIA [Suspect]
     Dosage: 4MG PER DAY
     Route: 048
     Dates: start: 20020616, end: 20070629
  2. DIOVAN [Concomitant]
  3. ENALAPRIL MALEATE [Concomitant]

REACTIONS (4)
  - CARDIAC FAILURE CONGESTIVE [None]
  - CEREBROVASCULAR ACCIDENT [None]
  - HEART INJURY [None]
  - MYOCARDIAL INFARCTION [None]
